FAERS Safety Report 10695787 (Version 1)
Quarter: 2015Q1

REPORT INFORMATION
  Report Type: Spontaneous
  Country: CA (occurrence: None)
  Receive Date: 20150105
  Receipt Date: 20150105
  Transmission Date: 20150721
  Serious: Yes (Other)
  Sender: FDA-Public Use
  Company Number: DEP_02424_2014

PATIENT
  Age: 65 Year
  Sex: Female

DRUGS (7)
  1. COD LIVER OIL [Concomitant]
     Active Substance: COD LIVER OIL
  2. VITAMIN B COMPLEX [Concomitant]
     Active Substance: CYANOCOBALAMIN\DEXPANTHENOL\NIACINAMIDE\PYRIDOXINE HYDROCHLORIDE\RIBOFLAVIN 5^-PHOSPHATE SODIUM\THIAMINE HYDROCHLORIDE\VITAMIN B COMPLEX
  3. DICLOFENAC (DICLOFENAC) [Suspect]
     Active Substance: DICLOFENAC SODIUM
     Indication: PRODUCT USED FOR UNKNOWN INDICATION
     Dosage: DF
  4. HYDROXYCHLOROQUINE PHOSPHATE [Concomitant]
  5. ACTEMRA [Suspect]
     Active Substance: TOCILIZUMAB
     Dosage: ONE  360MG INFUSION EVERY FOUR WEEKS INTRAVENOUS
     Route: 042
  6. LUTEIN [Concomitant]
     Active Substance: LUTEIN
  7. TOCOTRIENOLS NOS [Concomitant]

REACTIONS (16)
  - Ear pain [None]
  - Rash erythematous [None]
  - Arthralgia [None]
  - Full blood count decreased [None]
  - Excoriation [None]
  - Heart rate increased [None]
  - Abdominal pain upper [None]
  - Gastrointestinal ulcer [None]
  - Haemoglobin decreased [None]
  - Sinus congestion [None]
  - Fall [None]
  - Haemorrhage [None]
  - Blood pressure increased [None]
  - Drug ineffective [None]
  - Hypoaesthesia [None]
  - Rheumatoid arthritis [None]
